FAERS Safety Report 9966100 (Version 1)
Quarter: 2014Q1

REPORT INFORMATION
  Report Type: Report from Study
  Country: US (occurrence: US)
  Receive Date: 20140305
  Receipt Date: 20140305
  Transmission Date: 20141002
  Serious: No
  Sender: FDA-Public Use
  Company Number: US-ABBVIE-13P-163-1122130-00

PATIENT
  Age: 51 Year
  Sex: Female
  Weight: 93.07 kg

DRUGS (10)
  1. HUMIRA [Suspect]
     Indication: COLITIS ULCERATIVE
     Dates: start: 201302, end: 201302
  2. HUMIRA [Suspect]
  3. HUMIRA [Suspect]
  4. UNNAMED MEDICATION [Concomitant]
     Indication: HYPERTENSION
  5. UNNAMED MEDICATION [Concomitant]
     Indication: BLOOD CHOLESTEROL INCREASED
  6. UNNAMED MEDICATION [Concomitant]
     Indication: COLITIS ULCERATIVE
  7. UNNAMED MEDICATION [Concomitant]
     Indication: COLITIS ULCERATIVE
  8. FOLIC ACID [Concomitant]
     Indication: PRODUCT USED FOR UNKNOWN INDICATION
  9. UNNAMED MEDICATION [Concomitant]
     Indication: VERTIGO
  10. UNNAMED MEDICATION [Concomitant]
     Indication: PAIN

REACTIONS (8)
  - Hypoaesthesia [Not Recovered/Not Resolved]
  - Rheumatoid arthritis [Not Recovered/Not Resolved]
  - Paraesthesia [Not Recovered/Not Resolved]
  - Injection site erythema [Not Recovered/Not Resolved]
  - Injection site swelling [Not Recovered/Not Resolved]
  - Injection site pruritus [Not Recovered/Not Resolved]
  - Local swelling [Not Recovered/Not Resolved]
  - Pain in extremity [Not Recovered/Not Resolved]
